FAERS Safety Report 17899488 (Version 1)
Quarter: 2020Q2

REPORT INFORMATION
  Report Type: Spontaneous
  Country: US (occurrence: US)
  Receive Date: 20200615
  Receipt Date: 20200615
  Transmission Date: 20200714
  Serious: Yes (Life-Threatening, Hospitalization)
  Sender: FDA-Public Use
  Company Number: None

PATIENT
  Age: 70 Year
  Sex: Male

DRUGS (1)
  1. CEFEPIME (CEFEPIME HCL 2GM/VIL INJ) [Suspect]
     Active Substance: CEFEPIME HYDROCHLORIDE
     Indication: PNEUMONIA
     Dates: start: 20200226, end: 20200303

REACTIONS (6)
  - Hypertension [None]
  - Encephalopathy [None]
  - Confusional state [None]
  - Dizziness [None]
  - Myoclonus [None]
  - Delirium [None]

NARRATIVE: CASE EVENT DATE: 20200302
